FAERS Safety Report 7596049-0 (Version None)
Quarter: 2011Q3

REPORT INFORMATION
  Report Type: 
  Country: None (occurrence: None)
  Receive Date: 20110707
  Receipt Date: 20110706
  Transmission Date: 20111222
  Serious: Yes (Death, Hospitalization)
  Sender: FDA-Public Use
  Company Number: FR-EISAI INC-E2020-09409-SPO-FR

PATIENT
  Sex: Female

DRUGS (3)
  1. LAMISIL [Suspect]
     Indication: TRICHOPHYTOSIS
     Route: 048
     Dates: start: 20110502, end: 20110516
  2. ARICEPT [Suspect]
     Indication: DEMENTIA
     Route: 048
     Dates: start: 20110505, end: 20110516
  3. SERETIDE [Concomitant]
     Route: 048

REACTIONS (1)
  - ACUTE GENERALISED EXANTHEMATOUS PUSTULOSIS [None]
